FAERS Safety Report 9286797 (Version 1)
Quarter: 2013Q2

REPORT INFORMATION
  Report Type: Spontaneous
  Country: US (occurrence: US)
  Receive Date: 20130513
  Receipt Date: 20130513
  Transmission Date: 20140414
  Serious: Yes (Hospitalization)
  Sender: FDA-Public Use
  Company Number: US-TEVA-403561USA

PATIENT
  Age: 99 Year
  Sex: Female
  Weight: 63.56 kg

DRUGS (5)
  1. PROAIR HFA [Suspect]
     Indication: CHRONIC OBSTRUCTIVE PULMONARY DISEASE
  2. METOPROLOL [Concomitant]
     Indication: HYPERTENSION
  3. PRAVASTATIN [Concomitant]
     Indication: BLOOD CHOLESTEROL INCREASED
  4. OXYGEN [Concomitant]
     Dosage: ALL THE TIME
  5. IRON [Concomitant]

REACTIONS (1)
  - Chronic obstructive pulmonary disease [Unknown]
